FAERS Safety Report 17039011 (Version 1)
Quarter: 2019Q4

REPORT INFORMATION
  Report Type: Spontaneous
  Country: US (occurrence: US)
  Receive Date: 20191115
  Receipt Date: 20191115
  Transmission Date: 20200122
  Serious: Yes (Hospitalization, Other)
  Sender: FDA-Public Use
  Company Number: US-009507513-1911USA002666

PATIENT
  Age: 89 Year
  Sex: Female
  Weight: 58.9 kg

DRUGS (33)
  1. VENTOLIN HFA [Concomitant]
     Active Substance: ALBUTEROL SULFATE
  2. XANAX [Concomitant]
     Active Substance: ALPRAZOLAM
  3. NORVASC [Concomitant]
     Active Substance: AMLODIPINE BESYLATE
  4. LEVOTHROID [Concomitant]
     Active Substance: LEVOTHYROXINE SODIUM
  5. PERCOCET [Concomitant]
     Active Substance: ACETAMINOPHEN\OXYCODONE HYDROCHLORIDE
  6. DELTASONE [Concomitant]
     Active Substance: PREDNISONE
  7. LASIX [Suspect]
     Active Substance: FUROSEMIDE
     Indication: HYPERTENSION
     Dosage: 40 MILLIGRAM
     Route: 048
     Dates: end: 20190818
  8. POTASSIUM CHLORIDE. [Suspect]
     Active Substance: POTASSIUM CHLORIDE
     Indication: HYPERTENSION
     Dosage: UNK
     Dates: end: 20190818
  9. ZYLOPRIM [Concomitant]
     Active Substance: ALLOPURINOL
  10. FLECTOR [Concomitant]
     Active Substance: DICLOFENAC EPOLAMINE
  11. LEXAPRO [Concomitant]
     Active Substance: ESCITALOPRAM OXALATE
  12. SYNTHROID [Concomitant]
     Active Substance: LEVOTHYROXINE SODIUM
  13. OMEGA-3 MARINE TRIGLYCERIDES [Concomitant]
     Active Substance: FISH OIL
  14. KLOR-CON [Concomitant]
     Active Substance: POTASSIUM CHLORIDE
  15. TOVIAZ [Concomitant]
     Active Substance: FESOTERODINE FUMARATE
  16. ZYRTEC [Concomitant]
     Active Substance: CETIRIZINE HYDROCHLORIDE
  17. VOLTAREN [Concomitant]
     Active Substance: DICLOFENAC SODIUM
  18. RITALIN [Concomitant]
     Active Substance: METHYLPHENIDATE HYDROCHLORIDE
  19. RUXOLITINIB [Suspect]
     Active Substance: RUXOLITINIB
     Indication: ESSENTIAL THROMBOCYTHAEMIA
     Dosage: 15 MILLIGRAM, BID
     Route: 048
     Dates: start: 20190613
  20. PRINIVIL [Concomitant]
     Active Substance: LISINOPRIL
  21. ZESTRIL [Concomitant]
     Active Substance: LISINOPRIL
  22. CENTRUM SILVER [Concomitant]
     Active Substance: MINERALS\VITAMINS
  23. POTASSIUM GLUCONATE [Concomitant]
     Active Substance: POTASSIUM GLUCONATE
  24. PRINIVIL [Suspect]
     Active Substance: LISINOPRIL
     Indication: HYPERTENSION
     Dosage: UNK
     Route: 048
     Dates: end: 20190818
  25. BREO ELLIPTA [Concomitant]
     Active Substance: FLUTICASONE FUROATE\VILANTEROL TRIFENATATE
  26. HYGROTON [Concomitant]
     Active Substance: CHLORTHALIDONE
  27. CYANOCOBALAMIN. [Concomitant]
     Active Substance: CYANOCOBALAMIN
  28. ALLOPURINOL. [Suspect]
     Active Substance: ALLOPURINOL
     Indication: HYPERTENSION
     Dosage: UNK
     Dates: end: 20190818
  29. AUGMENTIN [Concomitant]
     Active Substance: AMOXICILLIN\CLAVULANATE POTASSIUM
  30. ASPIRIN. [Concomitant]
     Active Substance: ASPIRIN
  31. NEXIUM I.V. [Concomitant]
     Active Substance: ESOMEPRAZOLE SODIUM
  32. FERROUS SULFATE. [Concomitant]
     Active Substance: FERROUS SULFATE
  33. DITROPAN [Concomitant]
     Active Substance: OXYBUTYNIN CHLORIDE

REACTIONS (11)
  - Hypokalaemia [Recovered/Resolved]
  - Hypomagnesaemia [Recovered/Resolved]
  - Essential thrombocythaemia [Not Recovered/Not Resolved]
  - Chronic kidney disease [Not Recovered/Not Resolved]
  - Acute kidney injury [Recovering/Resolving]
  - Cardiac failure congestive [Unknown]
  - Chronic obstructive pulmonary disease [Not Recovered/Not Resolved]
  - Hyponatraemia [Recovered/Resolved]
  - Chronic respiratory disease [Not Recovered/Not Resolved]
  - Bronchitis [Recovering/Resolving]
  - Urinary tract infection [Recovered/Resolved]

NARRATIVE: CASE EVENT DATE: 20041001
